FAERS Safety Report 4738539-1 (Version None)
Quarter: 2005Q3

REPORT INFORMATION
  Report Type: 
  Country: None (occurrence: None)
  Receive Date: 20050803
  Receipt Date: 20050718
  Transmission Date: 20060218
  Serious: Yes (Hospitalization, Other)
  Sender: FDA-Public Use
  Company Number: 2005BL001041

PATIENT
  Age: 92 Year
  Sex: Female

DRUGS (2)
  1. LOTEMAX [Suspect]
     Indication: INFLAMMATION
     Dosage: 1 DROP ; 4 TIMES A DAY; OPHTHALMIC
     Dates: start: 20050210, end: 20050215
  2. LOTEMAX [Suspect]
     Indication: POST PROCEDURAL COMPLICATION
     Dosage: 1 DROP ; 4 TIMES A DAY; OPHTHALMIC
     Dates: start: 20050210, end: 20050215

REACTIONS (4)
  - ENDOPHTHALMITIS [None]
  - EYE DISORDER [None]
  - MACULAR OEDEMA [None]
  - VISUAL ACUITY REDUCED [None]
